FAERS Safety Report 7319970 (Version 2)
Quarter: 2013Q1

REPORT INFORMATION
  Report Type: Spontaneous
  Country: US (occurrence: US)
  Receive Date: 20100315
  Receipt Date: 20130207
  Transmission Date: 20140127
  Serious: Yes (Other)
  Sender: FDA-Public Use
  Company Number: US-ASTRAZENECA-2010SE02934

PATIENT
  Age: 71 Year
  Sex: Female
  Weight: 68 kg

DRUGS (10)
  1. NEXIUM [Suspect]
     Route: 048
  2. PRILOSEC [Suspect]
     Route: 048
  3. TUMS [Suspect]
     Route: 065
  4. FEMARA [Concomitant]
  5. ZOLOFT [Concomitant]
  6. METOPROLOL [Concomitant]
  7. LYRICA [Concomitant]
  8. GABAPENTIN [Concomitant]
  9. HYDROCODONE [Concomitant]
  10. XANAX [Concomitant]

REACTIONS (9)
  - Lung neoplasm malignant [Unknown]
  - Breast cancer [Unknown]
  - Metastases to lymph nodes [Unknown]
  - Weight decreased [Unknown]
  - Hiatus hernia [Unknown]
  - Tremor [Unknown]
  - Muscle spasms [Unknown]
  - Abdominal pain upper [Unknown]
  - Intentional drug misuse [Unknown]
